FAERS Safety Report 19217815 (Version 1)
Quarter: 2021Q2

REPORT INFORMATION
  Report Type: Spontaneous
  Country: CA (occurrence: CA)
  Receive Date: 20210505
  Receipt Date: 20210505
  Transmission Date: 20210717
  Serious: Yes (Other)
  Sender: FDA-Public Use
  Company Number: CA-SAMSUNG BIOEPIS-SB-2021-10926

PATIENT
  Age: 39 Year
  Sex: Male

DRUGS (3)
  1. EPIPEN [Concomitant]
     Active Substance: EPINEPHRINE
     Indication: PRODUCT USED FOR UNKNOWN INDICATION
     Dosage: 0.3 MG/0.3 ML, SOLUTION INTRAMUSCULAR, UNKNOWN
     Route: 065
  2. INFLIXIMAB [Suspect]
     Active Substance: INFLIXIMAB
     Indication: COLITIS ULCERATIVE
     Route: 042
  3. DIPHENHYDRAMINE. [Concomitant]
     Active Substance: DIPHENHYDRAMINE
     Indication: PRODUCT USED FOR UNKNOWN INDICATION
     Route: 042

REACTIONS (29)
  - Discomfort [Recovered/Resolved]
  - Feeling hot [Recovered/Resolved]
  - Gait disturbance [Recovered/Resolved]
  - Insomnia [Recovered/Resolved]
  - Urticaria [Recovered/Resolved]
  - Headache [Recovered/Resolved]
  - Skin plaque [Recovered/Resolved]
  - Tendon pain [Recovered/Resolved]
  - Anaphylactic reaction [Recovered/Resolved]
  - Arthralgia [Recovered/Resolved]
  - Body temperature fluctuation [Recovered/Resolved]
  - Migraine [Recovered/Resolved]
  - Pruritus [Recovered/Resolved]
  - Decreased immune responsiveness [Recovered/Resolved]
  - Erythema [Recovered/Resolved]
  - Influenza [Recovered/Resolved]
  - Infusion site bruising [Recovered/Resolved]
  - Swelling [Recovered/Resolved]
  - Blood pressure increased [Recovered/Resolved]
  - Condition aggravated [Recovered/Resolved]
  - Fatigue [Recovered/Resolved]
  - Myalgia [Recovered/Resolved]
  - Rash [Recovered/Resolved]
  - Dizziness [Recovered/Resolved]
  - Gastrointestinal disorder [Recovered/Resolved]
  - Hypertension [Recovered/Resolved]
  - Infusion site swelling [Recovered/Resolved]
  - Pain in extremity [Recovered/Resolved]
  - Treatment failure [Recovered/Resolved]
